FAERS Safety Report 9245389 (Version 4)
Quarter: 2013Q3

REPORT INFORMATION
  Report Type: Report from Study
  Country: CA (occurrence: CA)
  Receive Date: 20130422
  Receipt Date: 20130925
  Transmission Date: 20140515
  Serious: Yes (Death, Other)
  Sender: FDA-Public Use
  Company Number: CA-PFIZER INC-2013122315

PATIENT
  Sex: 0

DRUGS (5)
  1. METRONIDAZOLE [Suspect]
     Indication: NEOPLASM
     Dosage: 1500 MG/M2, 1X/DAY
     Route: 048
  2. METRONIDAZOLE [Suspect]
     Dosage: 500 MG/M2, 2X/DAY
     Route: 054
  3. METRONIDAZOLE [Suspect]
     Dosage: 500 MG/M2, 3X/DAY
     Route: 054
  4. ETOPOSIDE [Suspect]
     Indication: NEOPLASM
     Dosage: 100 MG/M2, 1X/DAY
     Route: 042
  5. KETOCONAZOLE [Suspect]
     Indication: NEOPLASM
     Dosage: 700 MG/M2, 1X/DAY
     Route: 048

REACTIONS (3)
  - Gastrointestinal haemorrhage [Fatal]
  - Pneumonia aspiration [Fatal]
  - Convulsion [Unknown]
